FAERS Safety Report 5059860-6 (Version None)
Quarter: 2006Q3

REPORT INFORMATION
  Report Type: 
  Country: None (occurrence: None)
  Receive Date: 20060724
  Receipt Date: 20060712
  Transmission Date: 20061208
  Serious: Yes (Other)
  Sender: FDA-Public Use
  Company Number: 2006AP03255

PATIENT
  Age: 18 Year
  Sex: Female

DRUGS (11)
  1. XYLOCAINE WITH EPINEPHERINE [Suspect]
     Indication: INFILTRATION ANAESTHESIA
     Dosage: 0.25% EPINEPHRINE
     Route: 004
  2. XYLOCAINE [Suspect]
     Indication: INDUCTION OF ANAESTHESIA
     Route: 065
  3. XYLOCAINE [Suspect]
     Route: 042
  4. DIPRIVAN [Suspect]
     Indication: INDUCTION OF ANAESTHESIA
     Route: 042
  5. FENTANYL CITRATE [Concomitant]
     Indication: INDUCTION OF ANAESTHESIA
     Route: 042
  6. FENTANYL CITRATE [Concomitant]
     Indication: MAINTENANCE OF ANAESTHESIA
     Route: 042
  7. FENTANYL CITRATE [Concomitant]
     Route: 055
  8. FENTANYL CITRATE [Concomitant]
     Route: 055
  9. VECURONIUM BROMIDE [Concomitant]
     Indication: INDUCTION OF ANAESTHESIA
     Route: 042
  10. NITROUS OXIDE W/ OXYGEN [Concomitant]
     Indication: MAINTENANCE OF ANAESTHESIA
     Route: 055
  11. SEVOFLURANE [Concomitant]
     Indication: MAINTENANCE OF ANAESTHESIA
     Route: 055

REACTIONS (3)
  - EXTRASYSTOLES [None]
  - PROCEDURAL COMPLICATION [None]
  - VENTRICULAR EXTRASYSTOLES [None]
